FAERS Safety Report 6424997-3 (Version None)
Quarter: 2009Q4

REPORT INFORMATION
  Report Type: 
  Country: None (occurrence: None)
  Receive Date: 20091103
  Receipt Date: 20091021
  Transmission Date: 20100525
  Serious: Yes (Death)
  Sender: FDA-Public Use
  Company Number: NZ-PFIZER INC-2009271405

PATIENT
  Age: 32 Year
  Sex: Male

DRUGS (2)
  1. ZELDOX [Suspect]
     Indication: SCHIZOPHRENIA
     Dosage: 40MG MANE AND 80MG NOCTE
     Route: 048
     Dates: start: 20080201, end: 20090617
  2. CITALOPRAM [Concomitant]
     Indication: DEPRESSION
     Dosage: 80 MG, 1X/DAY
     Dates: start: 20070101, end: 20090617

REACTIONS (1)
  - SUDDEN DEATH [None]
